FAERS Safety Report 6798937-1 (Version None)
Quarter: 2010Q2

REPORT INFORMATION
  Report Type: 
  Country: None (occurrence: None)
  Receive Date: 20100616
  Receipt Date: 20100601
  Transmission Date: 20101027
  Serious: Yes (Other)
  Sender: FDA-Public Use
  Company Number: US-JNJFOC-20100307359

PATIENT
  Age: 48 Year
  Sex: Male
  Weight: 105 kg

DRUGS (5)
  1. DECITABINE (DECITABINE) LYOPHILIZED POWDER [Suspect]
     Indication: ACUTE MYELOID LEUKAEMIA
     Dosage: 20 MG/M2, INTRAVENOUS; 20 MG/M2, INTRAVENOUS, CYCLE 4
     Route: 042
     Dates: start: 20090511, end: 20090515
  2. DECITABINE (DECITABINE) LYOPHILIZED POWDER [Suspect]
     Indication: ACUTE MYELOID LEUKAEMIA
     Dosage: 20 MG/M2, INTRAVENOUS; 20 MG/M2, INTRAVENOUS, CYCLE 4
     Route: 042
     Dates: end: 20100323
  3. DECITABINE (DECITABINE) LYOPHILIZED POWDER [Suspect]
     Indication: ACUTE MYELOID LEUKAEMIA
     Dosage: 20 MG/M2, INTRAVENOUS; 20 MG/M2, INTRAVENOUS, CYCLE 4
     Route: 042
     Dates: start: 20090209
  4. DECITABINE (DECITABINE) LYOPHILIZED POWDER [Suspect]
     Indication: ACUTE MYELOID LEUKAEMIA
     Dosage: 20 MG/M2, INTRAVENOUS; 20 MG/M2, INTRAVENOUS, CYCLE 4
     Route: 042
     Dates: start: 20090622
  5. LEVAQUIN [Concomitant]

REACTIONS (7)
  - HYPERHIDROSIS [None]
  - NAUSEA [None]
  - NEUTROPENIA [None]
  - PALLOR [None]
  - PNEUMONIA [None]
  - SYNCOPE [None]
  - THROMBOCYTOPENIA [None]
